FAERS Safety Report 4595405-2 (Version None)
Quarter: 2005Q1

REPORT INFORMATION
  Report Type: 
  Country: None (occurrence: None)
  Receive Date: 20050228
  Receipt Date: 20050228
  Transmission Date: 20050727
  Serious: No
  Sender: FDA-Public Use
  Company Number: None

PATIENT
  Age: 50 Year
  Sex: Male

DRUGS (1)
  1. CARAFATE [Suspect]
     Indication: GASTRIC ULCER
     Dosage: 1 GM QD

REACTIONS (1)
  - RASH [None]
